FAERS Safety Report 5693028-5 (Version None)
Quarter: 2008Q2

REPORT INFORMATION
  Report Type: 
  Country: None (occurrence: None)
  Receive Date: 20080401
  Receipt Date: 20080401
  Transmission Date: 20081010
  Serious: Yes (Other)
  Sender: FDA-Public Use
  Company Number: None

PATIENT
  Age: 37 Year
  Sex: Female
  Weight: 98.8842 kg

DRUGS (1)
  1. FOSPHENYTOIN [Suspect]
     Indication: CONVULSION
     Dosage: 1500 MG PE IN 100 ML NS ONE-TIME IV DRIP
     Route: 041
     Dates: start: 20080322, end: 20080322

REACTIONS (2)
  - BRADYCARDIA [None]
  - CARDIAC ARREST [None]
